FAERS Safety Report 12287180 (Version 1)
Quarter: 2016Q2

REPORT INFORMATION
  Report Type: Spontaneous
  Country: US (occurrence: US)
  Receive Date: 20160420
  Receipt Date: 20160420
  Transmission Date: 20160815
  Serious: Yes (Hospitalization)
  Sender: FDA-Public Use
  Company Number: US-JNJFOC-20160412060

PATIENT
  Age: 48 Year
  Sex: Female
  Weight: 88.45 kg

DRUGS (6)
  1. GLUCOSAMINE [Concomitant]
     Active Substance: GLUCOSAMINE
     Route: 065
  2. REMICADE [Suspect]
     Active Substance: INFLIXIMAB
     Indication: RHEUMATOID ARTHRITIS
     Route: 042
     Dates: start: 20160405
  3. NAPROXEN. [Concomitant]
     Active Substance: NAPROXEN
     Route: 065
  4. FISH OIL [Concomitant]
     Active Substance: FISH OIL
     Route: 065
  5. HEPARIN [Concomitant]
     Active Substance: HEPARIN SODIUM
     Route: 065
  6. PREDNISONE. [Concomitant]
     Active Substance: PREDNISONE
     Route: 065

REACTIONS (6)
  - Headache [Unknown]
  - Nausea [Unknown]
  - Pleural effusion [Unknown]
  - Somnolence [Unknown]
  - Pulmonary embolism [Unknown]
  - Deep vein thrombosis [Unknown]

NARRATIVE: CASE EVENT DATE: 201604
